FAERS Safety Report 4478650-6 (Version None)
Quarter: 2004Q3

REPORT INFORMATION
  Report Type: 
  Country: None (occurrence: None)
  Receive Date: 20040923
  Receipt Date: 20040719
  Transmission Date: 20050211
  Serious: No
  Sender: FDA-Public Use
  Company Number: 207116

PATIENT
  Age: 42 Year
  Sex: Female
  Weight: 78.6 kg

DRUGS (3)
  1. AVASTIN [Suspect]
     Indication: COLON CANCER
     Dosage: 450 MG, Q2W, INTRAVENOUS
     Route: 042
     Dates: start: 20040405, end: 20040419
  2. FLUOROURACIL [Concomitant]
  3. LEUCOVORIN CALCIUM [Concomitant]

REACTIONS (1)
  - HAEMORRHAGE [None]
